FAERS Safety Report 9969865 (Version 4)
Quarter: 2014Q3

REPORT INFORMATION
  Report Type: Spontaneous
  Country: IE (occurrence: IE)
  Receive Date: 20140306
  Receipt Date: 20140703
  Transmission Date: 20150326
  Serious: Yes (Other)
  Sender: FDA-Public Use
  Company Number: IE-JNJFOC-20140217115

PATIENT
  Sex: Male

DRUGS (1)
  1. XEPLION [Suspect]
     Active Substance: PALIPERIDONE PALMITATE
     Indication: SCHIZOPHRENIA, PARANOID TYPE
     Route: 030

REACTIONS (3)
  - Mania [Unknown]
  - Aggression [Unknown]
  - Drug ineffective [Unknown]
